FAERS Safety Report 6279852-9 (Version None)
Quarter: 2009Q3

REPORT INFORMATION
  Report Type: 
  Country: None (occurrence: None)
  Receive Date: 20090723
  Receipt Date: 20090713
  Transmission Date: 20100115
  Serious: Yes (Hospitalization, Other)
  Sender: FDA-Public Use
  Company Number: PHHY2009GT28607

PATIENT
  Age: 74 Year
  Sex: Male

DRUGS (4)
  1. EXFORGE [Suspect]
     Indication: HYPERTENSION
     Dosage: 320/5 MG PER DAY
     Route: 048
  2. CARVEDILOL [Concomitant]
     Dosage: 12.5 MG, BID
     Route: 048
  3. DAFLON 500 [Concomitant]
     Dosage: 500 MG, BID
     Route: 048
  4. ACETYLSALICYLIC ACID [Concomitant]
     Dosage: 100 MG, BID
     Route: 048

REACTIONS (5)
  - AGGRESSION [None]
  - BLOOD CREATININE INCREASED [None]
  - BLOOD UREA INCREASED [None]
  - CEREBRAL ATROPHY [None]
  - DISORIENTATION [None]
